FAERS Safety Report 17547789 (Version 1)
Quarter: 2020Q1

REPORT INFORMATION
  Report Type: Report from Study
  Country: None (occurrence: US)
  Receive Date: 20200316
  Receipt Date: 20200316
  Transmission Date: 20200409
  Serious: Yes (Other)
  Sender: FDA-Public Use
  Company Number: US-ABBVIE-20K-163-3316553-00

PATIENT
  Sex: Male

DRUGS (1)
  1. CREON [Suspect]
     Active Substance: PANCRELIPASE AMYLASE\PANCRELIPASE LIPASE\PANCRELIPASE PROTEASE
     Indication: PRODUCT USED FOR UNKNOWN INDICATION
     Route: 048

REACTIONS (7)
  - Anorectal discomfort [Recovering/Resolving]
  - Anal pruritus [Unknown]
  - Faeces discoloured [Recovering/Resolving]
  - Diarrhoea [Unknown]
  - Haemorrhoids [Unknown]
  - Anal pruritus [Recovering/Resolving]
  - Haematochezia [Not Recovered/Not Resolved]
